FAERS Safety Report 8495973-4 (Version None)
Quarter: 2012Q3

REPORT INFORMATION
  Report Type: 
  Country: None (occurrence: None)
  Receive Date: 20120709
  Receipt Date: 20120626
  Transmission Date: 20120928
  Serious: Yes (Hospitalization)
  Sender: FDA-Public Use
  Company Number: FR-VIIV HEALTHCARE LIMITED-B0811258A

PATIENT
  Sex: Female

DRUGS (4)
  1. NORVIR [Concomitant]
     Indication: HIV INFECTION
     Route: 065
     Dates: start: 20120601
  2. DESLORATADINE [Concomitant]
     Indication: RHINITIS ALLERGIC
     Route: 065
  3. REYATAZ [Concomitant]
     Indication: HIV INFECTION
     Route: 065
     Dates: start: 20120601
  4. ABACAVIR SULFATE/LAMIVUDINE [Suspect]
     Indication: HIV INFECTION
     Route: 048
     Dates: start: 20120601, end: 20120618

REACTIONS (8)
  - NAUSEA [None]
  - HYPERSENSITIVITY [None]
  - MALAISE [None]
  - HEADACHE [None]
  - INFLAMMATION [None]
  - PYREXIA [None]
  - ASTHENIA [None]
  - LYMPHADENOPATHY [None]
